FAERS Safety Report 21562677 (Version 1)
Quarter: 2022Q4

REPORT INFORMATION
  Report Type: Spontaneous
  Country: CA (occurrence: CA)
  Receive Date: 20221107
  Receipt Date: 20221107
  Transmission Date: 20230112
  Serious: Yes (Death, Disabling, Other)
  Sender: FDA-Public Use
  Company Number: CA-GALDERMA-CA2022014944

PATIENT

DRUGS (270)
  1. CALCITRIOL [Suspect]
     Active Substance: CALCITRIOL
     Indication: Product used for unknown indication
     Route: 065
  2. ACETAMINOPHEN [Concomitant]
     Active Substance: ACETAMINOPHEN
     Indication: Analgesic therapy
     Dosage: 65 MILLIGRAM, QD, 1 EVERY 1 DAYS
     Route: 048
  3. ACETAMINOPHEN [Concomitant]
     Active Substance: ACETAMINOPHEN
     Indication: Product used for unknown indication
  4. ACETAMINOPHEN [Concomitant]
     Active Substance: ACETAMINOPHEN
     Indication: Analgesic therapy
     Dosage: 5 MILLIGRAM
     Route: 042
  5. ACETAMINOPHEN [Concomitant]
     Active Substance: ACETAMINOPHEN
     Indication: Product used for unknown indication
  6. ALLOPURINOL [Concomitant]
     Active Substance: ALLOPURINOL
     Indication: Product used for unknown indication
     Dosage: 1 DOSAGE FORM
     Route: 048
  7. ALLOPURINOL [Concomitant]
     Active Substance: ALLOPURINOL
     Indication: Blood uric acid increased
     Dosage: 100 MILLIGRAM, QD, 1 EVERY 1 DAYS
     Route: 048
  8. ALLOPURINOL [Concomitant]
     Active Substance: ALLOPURINOL
     Dosage: 1 DOSAGE FORM, QD, 1 EVERY 1 DAYS
     Route: 048
  9. ALUMINUM HYDROXIDE\MAGNESIUM HYDROXIDE [Concomitant]
     Active Substance: ALUMINUM HYDROXIDE\MAGNESIUM HYDROXIDE
     Indication: Product used for unknown indication
     Route: 054
  10. ALUMINUM HYDROXIDE\MAGNESIUM HYDROXIDE [Concomitant]
     Active Substance: ALUMINUM HYDROXIDE\MAGNESIUM HYDROXIDE
     Indication: Constipation
  11. ALUMINUM HYDROXIDE\MAGNESIUM HYDROXIDE [Concomitant]
     Active Substance: ALUMINUM HYDROXIDE\MAGNESIUM HYDROXIDE
     Indication: Product used for unknown indication
     Dosage: 133 MILLILITER, QD, EVERY 1 DAYS
     Route: 054
  12. ALUMINUM HYDROXIDE\MAGNESIUM HYDROXIDE [Concomitant]
     Active Substance: ALUMINUM HYDROXIDE\MAGNESIUM HYDROXIDE
     Indication: Constipation
  13. AMIODARONE [Concomitant]
     Active Substance: AMIODARONE
     Indication: Ventricular fibrillation
     Dosage: 150 MILLIGRAM, QD,1 EVERY 1 DAYS
     Route: 042
  14. AMIODARONE [Concomitant]
     Active Substance: AMIODARONE
     Indication: Product used for unknown indication
     Dosage: 150 MILLIGRAM, QD,1 EVERY 1 DAYS
     Route: 065
  15. AMIODARONE [Concomitant]
     Active Substance: AMIODARONE
     Indication: Off label use
  16. AMIODARONE [Concomitant]
     Active Substance: AMIODARONE
     Indication: Intentional product misuse
  17. AMIODARONE [Concomitant]
     Active Substance: AMIODARONE
     Indication: Drug therapy
  18. AMIODARONE HYDROCHLORIDE [Concomitant]
     Active Substance: AMIODARONE HYDROCHLORIDE
     Indication: Ventricular fibrillation
     Dosage: 150 MILLIGRAM, QD,1 EVERY 1 DAYS
     Route: 042
  19. AMIODARONE HYDROCHLORIDE [Concomitant]
     Active Substance: AMIODARONE HYDROCHLORIDE
     Indication: Product used for unknown indication
     Dosage: UNK
     Route: 065
  20. AMIODARONE HYDROCHLORIDE [Concomitant]
     Active Substance: AMIODARONE HYDROCHLORIDE
     Indication: Intentional product misuse
     Dosage: UNK
     Route: 042
  21. AMIODARONE HYDROCHLORIDE [Concomitant]
     Active Substance: AMIODARONE HYDROCHLORIDE
     Indication: Drug therapy
  22. AMMONIUM CHLORIDE [Concomitant]
     Active Substance: AMMONIUM CHLORIDE
     Indication: Thrombosis
     Dosage: 2.5 MILLILITER, QD, EVERY 1 DAYS
     Route: 048
  23. AMMONIUM CHLORIDE [Concomitant]
     Active Substance: AMMONIUM CHLORIDE
     Indication: Product used for unknown indication
  24. ARANESP [Concomitant]
     Active Substance: DARBEPOETIN ALFA
     Indication: Product used for unknown indication
     Dosage: 0.71 MICROGRAM, QD, 1 EVERY 1 DAYS
     Route: 042
  25. ARANESP [Concomitant]
     Active Substance: DARBEPOETIN ALFA
     Indication: Anaemia
     Dosage: 10 MICROGRAM
     Route: 042
  26. ARANESP [Concomitant]
     Active Substance: DARBEPOETIN ALFA
     Dosage: 1.42 MICROGRAM, 1 EVERY 2 WEEKS
     Route: 042
  27. ARANESP [Concomitant]
     Active Substance: DARBEPOETIN ALFA
     Dosage: 1.42 MICROGRAM, 1 EVERY 1 WEEKS
     Route: 042
  28. ARANESP [Concomitant]
     Active Substance: DARBEPOETIN ALFA
     Dosage: 20MG, 1 EVERY 1 WEEKS
     Route: 065
  29. ARANESP [Concomitant]
     Active Substance: DARBEPOETIN ALFA
     Dosage: 0.71 MCG, 1 EVERY 2 WEEKS
     Route: 065
  30. ARANESP [Concomitant]
     Active Substance: DARBEPOETIN ALFA
     Dosage: 0.71 MCG, 1 EVERY 2 WEEKS
     Route: 042
  31. ARANESP [Concomitant]
     Active Substance: DARBEPOETIN ALFA
     Dosage: 10 MCG, 1 EVERY 2 WEEKS
     Route: 042
  32. ARANESP [Concomitant]
     Active Substance: DARBEPOETIN ALFA
     Dosage: 10 MCG, 1 EVERY 2 WEEKS
     Route: 065
  33. ARANESP [Concomitant]
     Active Substance: DARBEPOETIN ALFA
     Dosage: 10 MCG, 1 EVERY 2 WEEKS
     Route: 042
  34. ARANESP [Concomitant]
     Active Substance: DARBEPOETIN ALFA
     Dosage: 0.71 MCG, 1 EVERY 1 DAYS
     Route: 042
  35. ARANESP [Concomitant]
     Active Substance: DARBEPOETIN ALFA
     Dosage: 0.71 MCG, 1 EVERY 1 DAYS
     Route: 042
  36. ARANESP [Concomitant]
     Active Substance: DARBEPOETIN ALFA
     Dosage: UNK
     Route: 065
  37. ATROVENT [Concomitant]
     Active Substance: IPRATROPIUM BROMIDE
     Indication: Sleep disorder therapy
     Dosage: UNK
     Route: 065
  38. ATROVENT [Concomitant]
     Active Substance: IPRATROPIUM BROMIDE
     Indication: Product used for unknown indication
     Dosage: UNK UNK, TID, 1 EVERY 8 HOURS
     Route: 065
  39. ATROVENT [Concomitant]
     Active Substance: IPRATROPIUM BROMIDE
     Indication: Dyspnoea
     Dosage: 1 DOSAGE FORM, QD,1 EVERY 1 DAYS
     Route: 048
  40. ATROVENT [Concomitant]
     Active Substance: IPRATROPIUM BROMIDE
     Indication: Sleep disorder therapy
     Dosage: UNK, 1 EVERY 6 HOURS
     Route: 065
  41. ATROVENT [Concomitant]
     Active Substance: IPRATROPIUM BROMIDE
     Indication: Product used for unknown indication
     Dosage: UNK, 4 EVERY 1 DAYS
     Route: 065
  42. ATROVENT [Concomitant]
     Active Substance: IPRATROPIUM BROMIDE
     Indication: Dyspnoea
     Dosage: UNK,1 EVERY 1 DAYS
     Route: 065
  43. ATROVENT [Concomitant]
     Active Substance: IPRATROPIUM BROMIDE
     Dosage: UNK,1 EVERY 6 HOURS
     Route: 065
  44. ATROVENT [Concomitant]
     Active Substance: IPRATROPIUM BROMIDE
     Dosage: UNK,1 EVERY 4 DAYS
     Route: 065
  45. ATROVENT [Concomitant]
     Active Substance: IPRATROPIUM BROMIDE
     Dosage: UNK
     Route: 065
  46. BETAMETHASONE DIPROPIONATE [Concomitant]
     Active Substance: BETAMETHASONE DIPROPIONATE
     Indication: Swelling
     Dosage: UNK
     Route: 061
  47. BETAMETHASONE DIPROPIONATE [Concomitant]
     Active Substance: BETAMETHASONE DIPROPIONATE
     Indication: Product used for unknown indication
     Dosage: UNK UNK, QD, EVERY 1 DAYS
     Route: 061
  48. BETAMETHASONE DIPROPIONATE [Concomitant]
     Active Substance: BETAMETHASONE DIPROPIONATE
     Dosage: 10 MILLIGRAM, QD, EVERY 1 DAYS
     Route: 061
  49. BETAMETHASONE DIPROPIONATE [Concomitant]
     Active Substance: BETAMETHASONE DIPROPIONATE
     Dosage: UNK
     Route: 065
  50. BETAMETHASONE DIPROPIONATE [Concomitant]
     Active Substance: BETAMETHASONE DIPROPIONATE
     Dosage: 1 DOSAGE FORM, QD, EVERY 1 DAYS
     Route: 058
  51. BETAMETHASONE DIPROPIONATE [Concomitant]
     Active Substance: BETAMETHASONE DIPROPIONATE
     Dosage: 1 DOSAGE FORM, QD, EVERY 1 DAYS
     Route: 042
  52. BIOTIN [Concomitant]
     Active Substance: BIOTIN
  53. BISACODYL [Concomitant]
     Active Substance: BISACODYL
     Indication: Ventricular fibrillation
     Dosage: 10 MILLIGRAM
     Route: 065
  54. BISACODYL [Concomitant]
     Active Substance: BISACODYL
     Indication: Product used for unknown indication
     Dosage: 10 MILLIGRAM, QD,EVERY 1 DAYS
     Route: 054
  55. BISACODYL [Concomitant]
     Active Substance: BISACODYL
     Indication: Drug therapy
     Dosage: 10 MILLIGRAM,
     Route: 054
  56. BISACODYL [Concomitant]
     Active Substance: BISACODYL
     Indication: Constipation
     Dosage: UNK
     Route: 042
  57. BISACODYL [Concomitant]
     Active Substance: BISACODYL
     Indication: Product used for unknown indication
     Dosage: 10 MILLIGRAM, QD,EVERY 1 DAYS
     Route: 065
  58. BISACODYL [Concomitant]
     Active Substance: BISACODYL
     Indication: Constipation
     Dosage: 10 MILLIGRAM, QD,EVERY 1 DAYS
     Route: 054
  59. BISMUTH SUBNITRATE;MAGNESIUM OXIDE;MAGNESIUM TRISILICATE;SODIUM PHOSPH [Concomitant]
     Indication: Product used for unknown indication
     Dosage: UNK, QD, EVERY 1 DAYS
     Route: 054
  60. BISMUTH SUBNITRATE;MAGNESIUM OXIDE;MAGNESIUM TRISILICATE;SODIUM PHOSPH [Concomitant]
     Indication: Constipation
  61. CALCITRIOL [Concomitant]
     Active Substance: CALCITRIOL
     Indication: Vitamin D
     Dosage: 0.25 MICROGRAM, QD, 1 EVERY 1 DAYS
     Route: 065
  62. CALCITRIOL [Concomitant]
     Active Substance: CALCITRIOL
     Indication: Product used for unknown indication
     Dosage: 0.25 MICROGRAM, QD, 1 EVERY 1 DAYS
     Route: 048
  63. CARBOHYDRATES\FATTY ACIDS\MINERALS\PROTEIN\VITAMINS [Concomitant]
     Active Substance: CARBOHYDRATES\FATTY ACIDS\MINERALS\PROTEIN\VITAMINS
     Indication: Vitamin supplementation
     Route: 065
  64. CARBOHYDRATES\FATTY ACIDS\MINERALS\PROTEIN\VITAMINS [Concomitant]
     Active Substance: CARBOHYDRATES\FATTY ACIDS\MINERALS\PROTEIN\VITAMINS
     Indication: Vitamin D
     Dosage: 5 MILLIGRAM, QD, 1 EVERY 1 DAYS
     Route: 065
  65. CEFTRIAXONE [Concomitant]
     Active Substance: CEFTRIAXONE
     Indication: Product used for unknown indication
     Dosage: 2 GRAM, QD, 1 EVERY 1 DAYS
     Route: 042
  66. CEFTRIAXONE [Concomitant]
     Active Substance: CEFTRIAXONE
     Indication: Off label use
     Dosage: 2 GRAM
     Route: 042
  67. CEFTRIAXONE [Concomitant]
     Active Substance: CEFTRIAXONE
     Indication: Bacterial infection
     Dosage: UNK
     Route: 065
  68. CHLORAMPHENICOL\HYDROCORTISONE [Concomitant]
     Active Substance: CHLORAMPHENICOL\HYDROCORTISONE
     Indication: Product used for unknown indication
     Route: 065
  69. CHLORAMPHENICOL\HYDROCORTISONE [Concomitant]
     Active Substance: CHLORAMPHENICOL\HYDROCORTISONE
     Indication: Bacterial infection
  70. DEXTROSE [Concomitant]
     Active Substance: DEXTROSE
     Indication: Product used for unknown indication
     Dosage: 12.5 GRAM
     Route: 042
  71. DEXTROSE [Concomitant]
     Active Substance: DEXTROSE
     Indication: Nutritional supplementation
     Dosage: 12.5 MILLIGRAM, 1 EVERY 1 DAYS
     Route: 042
  72. DIPYRONE [Concomitant]
     Active Substance: DIPYRONE
     Indication: Vitamin supplementation
     Dosage: 5 MILLIGRAM, QD, 1 EVERY 1 DAYS
     Route: 042
  73. DIPYRONE [Concomitant]
     Active Substance: DIPYRONE
     Indication: Off label use
     Dosage: UNK
     Route: 042
  74. DIPYRONE [Concomitant]
     Active Substance: DIPYRONE
     Indication: Intentional product misuse
     Dosage: UNK
     Route: 065
  75. DISTIGMINE BROMIDE [Concomitant]
     Active Substance: DISTIGMINE BROMIDE
     Indication: Product used for unknown indication
     Route: 065
  76. DISTIGMINE BROMIDE [Concomitant]
     Active Substance: DISTIGMINE BROMIDE
     Indication: Dyspnoea
  77. DISTIGMINE BROMIDE [Concomitant]
     Active Substance: DISTIGMINE BROMIDE
     Indication: Product used for unknown indication
     Route: 065
  78. DISTIGMINE BROMIDE [Concomitant]
     Active Substance: DISTIGMINE BROMIDE
     Indication: Off label use
     Dosage: 1 INTERNATIONAL UNIT, QD, 1 EVERY 1 DAYS
     Route: 048
  79. DISTIGMINE BROMIDE [Concomitant]
     Active Substance: DISTIGMINE BROMIDE
     Indication: Dyspnoea
  80. DOBUTAMINE [Concomitant]
     Active Substance: DOBUTAMINE HYDROCHLORIDE
     Indication: Product used for unknown indication
     Route: 065
  81. DOBUTAMINE [Concomitant]
     Active Substance: DOBUTAMINE HYDROCHLORIDE
     Indication: Off label use
     Route: 042
  82. DOBUTAMINE [Concomitant]
     Active Substance: DOBUTAMINE HYDROCHLORIDE
     Indication: Cardiogenic shock
  83. FLUTICASONE FUROATE [Concomitant]
     Active Substance: FLUTICASONE FUROATE
     Indication: Product used for unknown indication
     Route: 065
  84. FLUTICASONE FUROATE [Concomitant]
     Active Substance: FLUTICASONE FUROATE
     Indication: Product used for unknown indication
     Route: 065
  85. FLUTICASONE FUROATE\VILANTEROL TRIFENATATE [Concomitant]
     Active Substance: FLUTICASONE FUROATE\VILANTEROL TRIFENATATE
     Indication: Product used for unknown indication
     Dosage: 1 DOSAGE FORM
     Route: 065
  86. FLUTICASONE FUROATE\VILANTEROL TRIFENATATE [Concomitant]
     Active Substance: FLUTICASONE FUROATE\VILANTEROL TRIFENATATE
     Indication: Nutritional supplementation
     Dosage: UNK DOSAGE FORM
     Route: 065
  87. FLUTICASONE FUROATE\VILANTEROL TRIFENATATE [Concomitant]
     Active Substance: FLUTICASONE FUROATE\VILANTEROL TRIFENATATE
     Indication: Dyspnoea
     Dosage: UNK UNK, QD, 1 EVERY 1 DAYS
     Route: 048
  88. FLUTICASONE PROPIONATE\SALMETEROL XINAFOATE [Concomitant]
     Active Substance: FLUTICASONE PROPIONATE\SALMETEROL XINAFOATE
     Indication: Nutritional supplementation
     Route: 065
  89. FRAGMIN [Concomitant]
     Active Substance: DALTEPARIN SODIUM
     Indication: Pulmonary embolism
     Route: 065
  90. FRAGMIN [Concomitant]
     Active Substance: DALTEPARIN SODIUM
     Indication: Product used for unknown indication
     Route: 048
  91. FRAGMIN [Concomitant]
     Active Substance: DALTEPARIN SODIUM
     Dosage: 2.5 MILLILITER
     Route: 048
  92. FRAGMIN [Concomitant]
     Active Substance: DALTEPARIN SODIUM
     Dosage: 2.5 MILLILITER, QD
     Route: 065
  93. FRAGMIN [Concomitant]
     Active Substance: DALTEPARIN SODIUM
     Indication: Pulmonary embolism
     Route: 042
  94. FRAGMIN [Concomitant]
     Active Substance: DALTEPARIN SODIUM
     Indication: Product used for unknown indication
  95. FURAZOLIDONE [Concomitant]
     Active Substance: FURAZOLIDONE
     Indication: Product used for unknown indication
     Dosage: 12.5 MILLIGRAM
     Route: 042
  96. GABAPENTIN [Concomitant]
     Active Substance: GABAPENTIN
     Indication: Product used for unknown indication
     Dosage: 100 MILLIGRAM
     Route: 048
  97. GABAPENTIN [Concomitant]
     Active Substance: GABAPENTIN
     Indication: Off label use
     Dosage: 100 UNK
     Route: 065
  98. GABAPENTIN [Concomitant]
     Active Substance: GABAPENTIN
     Indication: Neuralgia
     Dosage: 100 MILLIGRAM, QD,1 EVERY 1 DAYS
     Route: 048
  99. DEXTROSE [Concomitant]
     Active Substance: DEXTROSE
     Indication: Product used for unknown indication
     Dosage: 12.5 MILLIGRAM, QD,1 EVERY 1 DAYS
     Route: 042
  100. DEXTROSE [Concomitant]
     Active Substance: DEXTROSE
     Indication: Off label use
     Dosage: 12.5 MILLIGRAM, QD,1 EVERY 1 DAYS
     Route: 042
  101. DEXTROSE [Concomitant]
     Active Substance: DEXTROSE
     Indication: Nutritional supplementation
     Dosage: 12.5 MILLIGRAM, QD,1 EVERY 1 DAYS
     Route: 065
  102. DEXTROSE [Concomitant]
     Active Substance: DEXTROSE
     Indication: Product used for unknown indication
     Dosage: 12.5 GRAM
     Route: 042
  103. DEXTROSE [Concomitant]
     Active Substance: DEXTROSE
     Indication: Off label use
  104. DEXTROSE [Concomitant]
     Active Substance: DEXTROSE
     Indication: Nutritional supplementation
  105. DEXTROSE [Concomitant]
     Active Substance: DEXTROSE
  106. HEPARIN CALCIUM [Concomitant]
     Active Substance: HEPARIN CALCIUM
     Indication: Anticoagulant therapy
     Dosage: 50 MILLILITER, QD,EVERY 1 DAYS
     Route: 042
  107. HEPARIN CALCIUM [Concomitant]
     Active Substance: HEPARIN CALCIUM
     Indication: Product used for unknown indication
     Dosage: 50 MILLILITER, QD,EVERY 1 DAYS
     Route: 042
  108. HEPARIN CALCIUM [Concomitant]
     Active Substance: HEPARIN CALCIUM
     Indication: Off label use
  109. HEPARIN CALCIUM [Concomitant]
     Active Substance: HEPARIN CALCIUM
     Indication: Intentional product misuse
  110. HEPARIN CALCIUM [Concomitant]
     Active Substance: HEPARIN CALCIUM
     Indication: Anticoagulant therapy
  111. HEPARIN SODIUM [Concomitant]
     Active Substance: HEPARIN SODIUM
     Indication: Product used for unknown indication
     Route: 065
  112. HEPARIN SODIUM [Concomitant]
     Active Substance: HEPARIN SODIUM
     Indication: Off label use
     Dosage: 50 MILLILITER, QD, 1 EVERY 1 DAYS
     Route: 042
  113. HEPARIN SODIUM [Concomitant]
     Active Substance: HEPARIN SODIUM
     Indication: Intentional product misuse
     Dosage: 250 MILLILITER, QD, 1 EVERY 1 DAYS
     Route: 042
  114. HEPARIN SODIUM [Concomitant]
     Active Substance: HEPARIN SODIUM
     Indication: Anticoagulant therapy
     Dosage: 250 MILLILITER
     Route: 042
  115. HEPARIN SODIUM [Concomitant]
     Active Substance: HEPARIN SODIUM
     Indication: Product used for unknown indication
     Dosage: 50 MILLILITER, QD,EVERY 1 DAYS
     Route: 042
  116. HEPARIN SODIUM [Concomitant]
     Active Substance: HEPARIN SODIUM
     Indication: Off label use
  117. HEPARIN SODIUM [Concomitant]
     Active Substance: HEPARIN SODIUM
     Indication: Intentional product misuse
  118. HEPARIN SODIUM [Concomitant]
     Active Substance: HEPARIN SODIUM
     Indication: Anticoagulant therapy
  119. HEPARINOID [Concomitant]
     Indication: Product used for unknown indication
     Dosage: 250 MILLILITER, QD, 1 EVERY 1 DAYS
     Route: 042
  120. HEPARINOID [Concomitant]
     Indication: Anticoagulant therapy
     Dosage: 250 MILLILITER, QD, 1 EVERY 1 DAYS
     Route: 042
  121. HYDROMORPHONE [Concomitant]
     Active Substance: HYDROMORPHONE
     Indication: Product used for unknown indication
     Dosage: 6 MILLIGRAM, QID,1 EVERY 6 HOURS
     Route: 058
  122. HYDROMORPHONE [Concomitant]
     Active Substance: HYDROMORPHONE
     Indication: Analgesic therapy
     Dosage: 17 MILLIGRAM, QD, 1 EVERY 1 DAYS
     Route: 058
  123. HYDROMORPHONE [Concomitant]
     Active Substance: HYDROMORPHONE
     Dosage: 1 MILLIGRAM, QD, 1 EVERY 1 DAYS
     Route: 058
  124. HYDROMORPHONE [Concomitant]
     Active Substance: HYDROMORPHONE
     Dosage: 24MG, 1 EVERY 6 HOURS
     Route: 058
  125. HYDROMORPHONE [Concomitant]
     Active Substance: HYDROMORPHONE
     Dosage: 1MG, 1 EVERY 6 HOURS
     Route: 065
  126. HYDROMORPHONE [Concomitant]
     Active Substance: HYDROMORPHONE
     Dosage: 24MG, 1 EVERY 4 HOURS
     Route: 058
  127. HYDROMORPHONE [Concomitant]
     Active Substance: HYDROMORPHONE
     Dosage: 1MG
     Route: 058
  128. HYDROMORPHONE [Concomitant]
     Active Substance: HYDROMORPHONE
     Dosage: 6MG, 1 EVERY 5 HOURS
     Route: 058
  129. HYDROMORPHONE [Concomitant]
     Active Substance: HYDROMORPHONE
     Dosage: 4MG, 1 EVERY 4 HOURS
     Route: 058
  130. HYDROMORPHONE [Concomitant]
     Active Substance: HYDROMORPHONE
     Dosage: 6MG, 1 EVERY 4 HOURS
     Route: 058
  131. HYDROMORPHONE [Concomitant]
     Active Substance: HYDROMORPHONE
     Dosage: 6MG, 4 EVERY 1 DAYS
     Route: 058
  132. HYDROMORPHONE [Concomitant]
     Active Substance: HYDROMORPHONE
     Dosage: 96MG,1 EVERY 1 DAYS
     Route: 058
  133. INSULIN ASPART [Concomitant]
     Active Substance: INSULIN ASPART
     Indication: Product used for unknown indication
     Route: 058
  134. INSULIN ASPART [Concomitant]
     Active Substance: INSULIN ASPART
     Indication: Diabetes mellitus
     Route: 065
  135. INSULIN ASPART [Concomitant]
     Active Substance: INSULIN ASPART
     Route: 048
  136. IPRATROPIUM [Concomitant]
     Active Substance: IPRATROPIUM
     Indication: Product used for unknown indication
     Dosage: 1 DOSAGE FORM, QD,1 EVERY 1 DAYS
     Route: 065
  137. IPRATROPIUM [Concomitant]
     Active Substance: IPRATROPIUM
     Indication: Dyspnoea
     Dosage: 1 EVERY 1 DAYS
     Route: 065
  138. IPRATROPIUM BROMIDE [Concomitant]
     Active Substance: IPRATROPIUM BROMIDE
     Indication: Product used for unknown indication
     Dosage: UNK
     Route: 065
  139. IPRATROPIUM BROMIDE [Concomitant]
     Active Substance: IPRATROPIUM BROMIDE
     Indication: Dyspnoea
     Dosage: UNK
     Route: 048
  140. IPRATROPIUM BROMIDE [Concomitant]
     Active Substance: IPRATROPIUM BROMIDE
     Dosage: 1 DOSAGE FORM,1 EVERY 6 HOURS
     Route: 065
  141. IPRATROPIUM BROMIDE [Concomitant]
     Active Substance: IPRATROPIUM BROMIDE
     Dosage: UNK, QD, 1 EVERY 1 DAYS
     Route: 065
  142. IPRATROPIUM BROMIDE [Concomitant]
     Active Substance: IPRATROPIUM BROMIDE
     Dosage: 1 DOSAGE FORM,1 EVERY 1 DAYS
     Route: 065
  143. IPRATROPIUM BROMIDE [Concomitant]
     Active Substance: IPRATROPIUM BROMIDE
     Dosage: UNK, QD,1 EVERY 1 DAYS
     Route: 065
  144. IPRATROPIUM BROMIDE\XYLOMETAZOLINE HYDROCHLORIDE [Concomitant]
     Active Substance: IPRATROPIUM BROMIDE\XYLOMETAZOLINE HYDROCHLORIDE
     Indication: Product used for unknown indication
     Route: 065
  145. IPRATROPIUM BROMIDE\XYLOMETAZOLINE HYDROCHLORIDE [Concomitant]
     Active Substance: IPRATROPIUM BROMIDE\XYLOMETAZOLINE HYDROCHLORIDE
     Indication: Dyspnoea
  146. LANTHANUM CARBONATE [Concomitant]
     Active Substance: LANTHANUM CARBONATE
     Indication: Product used for unknown indication
     Dosage: 500 MILLIGRAM, QD,1 EVERY 1 DAYS
     Route: 048
  147. LANTHANUM CARBONATE [Concomitant]
     Active Substance: LANTHANUM CARBONATE
     Indication: Off label use
     Dosage: UNK
     Route: 048
  148. LANTHANUM CARBONATE [Concomitant]
     Active Substance: LANTHANUM CARBONATE
     Indication: Hyperphosphataemia
     Dosage: UNK
     Route: 065
  149. POLYETHYLENE GLYCOLS [Concomitant]
     Active Substance: POLYETHYLENE GLYCOLS
     Indication: Product used for unknown indication
     Route: 048
  150. POLYETHYLENE GLYCOLS [Concomitant]
     Active Substance: POLYETHYLENE GLYCOLS
     Indication: Constipation
     Dosage: 12.5 GRAM
     Route: 042
  151. POLYETHYLENE GLYCOLS [Concomitant]
     Active Substance: POLYETHYLENE GLYCOLS
     Dosage: 17 MILLIGRAM
     Route: 048
  152. POLYETHYLENE GLYCOLS [Concomitant]
     Active Substance: POLYETHYLENE GLYCOLS
     Dosage: 17 MILLIGRAM, QD, 1 EVERY 1 DAYS
     Route: 048
  153. POLYETHYLENE GLYCOLS [Concomitant]
     Active Substance: POLYETHYLENE GLYCOLS
     Dosage: 17 G, QD, 1 EVERY 1 DAYS
     Route: 048
  154. POLYETHYLENE GLYCOL 3350 [Concomitant]
     Active Substance: POLYETHYLENE GLYCOL 3350
     Indication: Product used for unknown indication
     Dosage: 17 MILLIGRAM
     Route: 048
  155. POLYETHYLENE GLYCOL 3350 [Concomitant]
     Active Substance: POLYETHYLENE GLYCOL 3350
     Indication: Off label use
     Dosage: 3 MILLIGRAM, QWK, 1 EVERY 1 WEEKS
     Route: 048
  156. POLYETHYLENE GLYCOL 3350 [Concomitant]
     Active Substance: POLYETHYLENE GLYCOL 3350
     Indication: Constipation
     Dosage: 17 MILLIGRAM, QD,1 EVERY 1 DAYS
     Route: 048
  157. POLYETHYLENE GLYCOL 3350 [Concomitant]
     Active Substance: POLYETHYLENE GLYCOL 3350
     Dosage: 1 EVERY 1 DAYS
     Route: 048
  158. POLYETHYLENE GLYCOL 3350 [Concomitant]
     Active Substance: POLYETHYLENE GLYCOL 3350
     Dosage: 17 G, QD,1 EVERY 1 DAYS
     Route: 048
  159. POLYETHYLENE GLYCOL 3350 [Concomitant]
     Active Substance: POLYETHYLENE GLYCOL 3350
     Dosage: 17 G, QD,1 EVERY 1 DAYS
     Route: 042
  160. MAGNESIUM OXIDE [Concomitant]
     Active Substance: MAGNESIUM OXIDE
     Indication: Product used for unknown indication
     Route: 065
  161. MAGNESIUM OXIDE [Concomitant]
     Active Substance: MAGNESIUM OXIDE
     Indication: Constipation
     Dosage: 133 MILLILITER, QD, EVERY 1 DAYS
     Route: 065
  162. MALTOSE [Concomitant]
     Active Substance: MALTOSE
     Indication: Nutritional supplementation
     Dosage: 12.5 GRAM
     Route: 042
  163. MANNITOL [Concomitant]
     Active Substance: MANNITOL
     Indication: Nutritional supplementation
     Dosage: 12.5 GRAM
     Route: 042
  164. MELATONIN [Concomitant]
     Active Substance: MELATONIN
     Indication: Sleep disorder therapy
     Dosage: 3 MILLIGRAM, QD, 1 EVERY 1 DAYS
     Route: 048
  165. MELATONIN [Concomitant]
     Active Substance: MELATONIN
     Indication: Product used for unknown indication
     Dosage: 3 MILLIGRAM
     Route: 048
  166. MELATONIN [Concomitant]
     Active Substance: MELATONIN
     Indication: Intentional product misuse
     Dosage: UNK
     Route: 065
  167. METRONIDAZOLE [Concomitant]
     Active Substance: METRONIDAZOLE
     Indication: Product used for unknown indication
     Dosage: 500 MILLIGRAM, TID,1 EVERY 8 HOURS
     Route: 048
  168. METRONIDAZOLE [Concomitant]
     Active Substance: METRONIDAZOLE
     Indication: Intentional product misuse
     Dosage: 1500 MILLIGRAM, QD, 1 EVERY 1 DAYS
     Route: 048
  169. METRONIDAZOLE [Concomitant]
     Active Substance: METRONIDAZOLE
     Indication: Bacterial infection
     Dosage: 500 MILLIGRAM, QD, 1 EVERY 1 DAYS
     Route: 048
  170. METRONIDAZOLE [Concomitant]
     Active Substance: METRONIDAZOLE
     Dosage: 1500 MILLIGRAM
     Route: 048
  171. NOREPINEPHRINE [Concomitant]
     Active Substance: NOREPINEPHRINE
     Indication: Stress
     Dosage: UNK
     Route: 042
  172. NOREPINEPHRINE [Concomitant]
     Active Substance: NOREPINEPHRINE
     Indication: Product used for unknown indication
     Dosage: 3 MILLIGRAM, QD, 1 EVERY 1 DAYS
     Route: 048
  173. NOREPINEPHRINE [Concomitant]
     Active Substance: NOREPINEPHRINE
     Indication: Off label use
     Dosage: 1 DOSAGE FORM, QD, 1 EVERY 1 DAYS
     Route: 042
  174. NOREPINEPHRINE [Concomitant]
     Active Substance: NOREPINEPHRINE
     Indication: Nutritional supplementation
     Dosage: UNK
     Route: 065
  175. NOREPINEPHRINE [Concomitant]
     Active Substance: NOREPINEPHRINE
     Indication: Intentional product misuse
     Dosage: 3 MILLIGRAM,
     Route: 048
  176. NOREPINEPHRINE [Concomitant]
     Active Substance: NOREPINEPHRINE
     Dosage: 12.5MG, 1 EVERY 1 DAYS
     Route: 065
  177. NOREPINEPHRINE BITARTRATE [Concomitant]
     Active Substance: NOREPINEPHRINE BITARTRATE
     Indication: Stress
     Route: 048
  178. NOREPINEPHRINE BITARTRATE [Concomitant]
     Active Substance: NOREPINEPHRINE BITARTRATE
     Indication: Product used for unknown indication
  179. NOREPINEPHRINE BITARTRATE [Concomitant]
     Active Substance: NOREPINEPHRINE BITARTRATE
     Indication: Stress
     Route: 042
  180. NOREPINEPHRINE BITARTRATE [Concomitant]
     Active Substance: NOREPINEPHRINE BITARTRATE
     Indication: Product used for unknown indication
     Dosage: 3 MILLIGRAM, QD, 1 EVERY 1 DAYS
     Route: 048
  181. NOREPINEPHRINE BITARTRATE [Concomitant]
     Active Substance: NOREPINEPHRINE BITARTRATE
     Dosage: 1 DOSAGE FORM
     Route: 048
  182. ONDANSETRON [Concomitant]
     Active Substance: ONDANSETRON
     Indication: Vomiting
     Dosage: 36 MILLIGRAM, TID,1 EVERY 8 HOURS
     Route: 042
  183. ONDANSETRON [Concomitant]
     Active Substance: ONDANSETRON
     Indication: Product used for unknown indication
     Dosage: 36 MILLIGRAM,3 EVERY 1 DAYS
     Route: 042
  184. ONDANSETRON [Concomitant]
     Active Substance: ONDANSETRON
     Indication: Off label use
     Dosage: 12 MILLIGRAM,1 EVERY 8 HOURS
     Route: 042
  185. ONDANSETRON [Concomitant]
     Active Substance: ONDANSETRON
     Indication: Nausea
     Dosage: 4 MILLIGRAM,1 EVERY 8 HOURS
     Route: 042
  186. ONDANSETRON [Concomitant]
     Active Substance: ONDANSETRON
     Dosage: 41.14 MILLIGRAM,1 EVERY 8 HOURS
     Route: 042
  187. ONDANSETRON [Concomitant]
     Active Substance: ONDANSETRON
     Dosage: 40 MILLIGRAM,1 EVERY 8 HOURS
     Route: 042
  188. ONDANSETRON [Concomitant]
     Active Substance: ONDANSETRON
     Dosage: 40 MILLIGRAM,1 EVERY 8 HOURS
     Route: 065
  189. ONDANSETRON [Concomitant]
     Active Substance: ONDANSETRON
     Dosage: 24 MILLIGRAM, 1 EVERY 1 DAYS
     Route: 065
  190. ONDANSETRON HYDROCHLORIDE [Concomitant]
     Active Substance: ONDANSETRON HYDROCHLORIDE
     Indication: Vomiting
     Dosage: 12 MILLIGRAM, TID, 1 EVERY 8 HOURS
     Route: 042
  191. ONDANSETRON HYDROCHLORIDE [Concomitant]
     Active Substance: ONDANSETRON HYDROCHLORIDE
     Indication: Product used for unknown indication
     Dosage: UNK
     Route: 065
  192. ONDANSETRON HYDROCHLORIDE [Concomitant]
     Active Substance: ONDANSETRON HYDROCHLORIDE
     Indication: Nausea
     Dosage: 4 MILLIGRAM, TID, 1 EVERY 8 HOURS
     Route: 042
  193. OSELTAMIVIR PHOSPHATE [Concomitant]
     Active Substance: OSELTAMIVIR PHOSPHATE
     Indication: Product used for unknown indication
     Route: 054
  194. OSELTAMIVIR PHOSPHATE [Concomitant]
     Active Substance: OSELTAMIVIR PHOSPHATE
     Route: 065
  195. OSELTAMIVIR PHOSPHATE [Concomitant]
     Active Substance: OSELTAMIVIR PHOSPHATE
     Dosage: 133 MILLILITER
     Route: 054
  196. OSELTAMIVIR PHOSPHATE [Concomitant]
     Active Substance: OSELTAMIVIR PHOSPHATE
     Dosage: 12.5 MILLIGRAM
     Route: 042
  197. OTRIVIN [Concomitant]
     Active Substance: XYLOMETAZOLINE
     Indication: Product used for unknown indication
     Route: 065
  198. OTRIVIN [Concomitant]
     Active Substance: XYLOMETAZOLINE
     Indication: Dyspnoea
     Dosage: 1 DOSAGE FORM, QD, 1 EVERY 1 DAYS
     Route: 065
  199. OTRIVIN [Concomitant]
     Active Substance: XYLOMETAZOLINE
     Indication: Product used for unknown indication
     Route: 065
  200. OTRIVIN [Concomitant]
     Active Substance: XYLOMETAZOLINE
     Indication: Dyspnoea
  201. PANAX GINSENG EXTRACT;PAULLINIA CUPANA [Concomitant]
     Indication: Nutritional supplementation
     Dosage: 12.5 MILLIGRAM
     Route: 042
  202. HERBALS\PAULLINIA CUPANA SEED [Concomitant]
     Active Substance: HERBALS\PAULLINIA CUPANA SEED
     Indication: Product used for unknown indication
     Dosage: 17 MILLIGRAM
     Route: 048
  203. HERBALS\PAULLINIA CUPANA SEED [Concomitant]
     Active Substance: HERBALS\PAULLINIA CUPANA SEED
     Indication: Nutritional supplementation
     Dosage: 12.5 MILLIGRAM
     Route: 042
  204. HERBALS\PAULLINIA CUPANA SEED [Concomitant]
     Active Substance: HERBALS\PAULLINIA CUPANA SEED
     Dosage: UNK MILLIGRAM
     Route: 042
  205. PHYTONADIONE [Concomitant]
     Active Substance: PHYTONADIONE
     Indication: Vitamin supplementation
     Route: 065
  206. PHYTONADIONE [Concomitant]
     Active Substance: PHYTONADIONE
     Indication: Product used for unknown indication
     Dosage: 5 MILLIGRAM
     Route: 042
  207. PHYTONADIONE [Concomitant]
     Active Substance: PHYTONADIONE
     Indication: Off label use
     Dosage: 5 MILLIGRAM, QD, 1 EVERY 1 DAYS
     Route: 042
  208. POTASSIUM CHLORIDE [Concomitant]
     Active Substance: POTASSIUM CHLORIDE
     Indication: Product used for unknown indication
     Route: 065
  209. PREVACID [Concomitant]
     Active Substance: LANSOPRAZOLE
     Indication: Product used for unknown indication
     Dosage: 30 MILLIGRAM, QD, 1 EVERY 1 DAYS
     Route: 048
  210. PREVACID [Concomitant]
     Active Substance: LANSOPRAZOLE
     Indication: Intentional product misuse
     Dosage: 30 MILLIGRAM
     Route: 065
  211. PREVACID [Concomitant]
     Active Substance: LANSOPRAZOLE
     Indication: Antacid therapy
     Dosage: 30 MILLIGRAM, QD, 1 EVERY 1 DAYS
     Route: 065
  212. PYRIDOXINE HYDROCHLORIDE [Concomitant]
     Active Substance: PYRIDOXINE HYDROCHLORIDE
     Indication: Vitamin supplementation
     Dosage: UNK, QID, 4 EVERY 1 DAYS
     Route: 048
  213. PYRIDOXINE HYDROCHLORIDE [Concomitant]
     Active Substance: PYRIDOXINE HYDROCHLORIDE
     Indication: Product used for unknown indication
     Dosage: UNK, QID, 4 EVERY 1 DAYS
     Route: 065
  214. PYRIDOXINE HYDROCHLORIDE [Concomitant]
     Active Substance: PYRIDOXINE HYDROCHLORIDE
     Indication: Constipation
     Dosage: 10MG, EVERY 1 DAYS
     Route: 048
  215. PYRIDOXINE HYDROCHLORIDE [Concomitant]
     Active Substance: PYRIDOXINE HYDROCHLORIDE
     Indication: Analgesic therapy
     Dosage: 10 UNK
     Route: 065
  216. ALBUTEROL [Concomitant]
     Active Substance: ALBUTEROL
     Indication: Product used for unknown indication
     Dosage: 4 DOSAGE FORM, 4 EVERY 1 DAYS
     Route: 065
  217. ALBUTEROL [Concomitant]
     Active Substance: ALBUTEROL
     Indication: Chronic obstructive pulmonary disease
     Dosage: UNK
     Route: 065
  218. ALBUTEROL [Concomitant]
     Active Substance: ALBUTEROL
     Dosage: UNK, 1 EVERY 6 HOURS
     Route: 065
  219. ALBUTEROL [Concomitant]
     Active Substance: ALBUTEROL
     Dosage: UNK, 1 EVERY 1 DAYS
     Route: 065
  220. ALBUTEROL [Concomitant]
     Active Substance: ALBUTEROL
     Dosage: UNK, 4 EVERY 1 DAYS
     Route: 065
  221. ALBUTEROL [Concomitant]
     Active Substance: ALBUTEROL
     Dosage: 1 DOSAGE FORM, 1 EVERY 6 HOURS
     Route: 065
  222. SIMVASTATIN [Concomitant]
     Active Substance: SIMVASTATIN
     Indication: Vitamin supplementation
     Dosage: 40 MILLIGRAM, QD, 1 EVERY 1 DAYS
     Route: 048
  223. SIMVASTATIN [Concomitant]
     Active Substance: SIMVASTATIN
     Indication: Product used for unknown indication
     Dosage: UNK
     Route: 065
  224. SIMVASTATIN [Concomitant]
     Active Substance: SIMVASTATIN
     Indication: Blood cholesterol increased
  225. SODIUM BICARBONATE [Concomitant]
     Active Substance: SODIUM BICARBONATE
     Indication: Nutritional supplementation
     Dosage: 12.5 GRAM, QD, EVERY 1 DAYS
     Route: 042
  226. SODIUM CITRATE [Concomitant]
     Active Substance: SODIUM CITRATE
     Indication: Thrombosis
     Dosage: 2.5 MILLILITER, QD, EVERY 1 DAYS
     Route: 065
  227. SODIUM CITRATE [Concomitant]
     Active Substance: SODIUM CITRATE
     Indication: Product used for unknown indication
     Dosage: 2.5 MG, QD, EVERY 1 DAYS
     Route: 065
  228. SODIUM CITRATE [Concomitant]
     Active Substance: SODIUM CITRATE
     Dosage: 2G
     Route: 065
  229. SODIUM CITRATE [Concomitant]
     Active Substance: SODIUM CITRATE
     Dosage: UNK
     Route: 065
  230. SODIUM FERRIC GLUCONATE COMPLEX [Concomitant]
     Active Substance: SODIUM FERRIC GLUCONATE COMPLEX
     Indication: Product used for unknown indication
     Dosage: 125 MILLIGRAM, 1 EVERY 4 WEEKS
     Route: 042
  231. SODIUM FERRIC GLUCONATE COMPLEX [Concomitant]
     Active Substance: SODIUM FERRIC GLUCONATE COMPLEX
     Indication: Iron deficiency
     Dosage: 125 MILLIGRAM, 1 EVERY 1 WEEKS
     Route: 042
  232. SODIUM FERRIC GLUCONATE COMPLEX [Concomitant]
     Active Substance: SODIUM FERRIC GLUCONATE COMPLEX
     Dosage: 4.64 MILLIGRAM, 1 EVERY 4 WEEKS
     Route: 042
  233. SODIUM FERRIC GLUCONATE COMPLEX [Concomitant]
     Active Substance: SODIUM FERRIC GLUCONATE COMPLEX
     Dosage: 4.64 MILLIGRAM
     Route: 042
  234. SODIUM FERRIC GLUCONATE COMPLEX [Concomitant]
     Active Substance: SODIUM FERRIC GLUCONATE COMPLEX
     Dosage: 125 MILLIGRAM
     Route: 042
  235. SODIUM FERRIC GLUCONATE COMPLEX [Concomitant]
     Active Substance: SODIUM FERRIC GLUCONATE COMPLEX
     Dosage: 1.25 MILLIGRAM, 1 EVERY 4 WEEKS
     Route: 042
  236. SODIUM FERRIC GLUCONATE COMPLEX [Concomitant]
     Active Substance: SODIUM FERRIC GLUCONATE COMPLEX
     Dosage: 1.25 MILLIGRAM, 1 EVERY 1 WEEKS
     Route: 042
  237. SODIUM FERRIC GLUCONATE COMPLEX [Concomitant]
     Active Substance: SODIUM FERRIC GLUCONATE COMPLEX
     Dosage: UNK
     Route: 065
  238. SODIUM FERRIC GLUCONATE COMPLEX [Concomitant]
     Active Substance: SODIUM FERRIC GLUCONATE COMPLEX
     Dosage: 4.64 MILLIGRAM, 1 EVERY 1 MONTH
     Route: 042
  239. SODIUM PHOSPHATE, MONOBASIC [Concomitant]
     Active Substance: SODIUM PHOSPHATE, MONOBASIC
     Indication: Product used for unknown indication
     Dosage: 133 MILLILITER, QD, EVERY 1 DAYS
     Route: 065
  240. SODIUM PHOSPHATE, MONOBASIC [Concomitant]
     Active Substance: SODIUM PHOSPHATE, MONOBASIC
     Indication: Constipation
     Dosage: 133 MILLILITER, QD, EVERY 1 DAYS
     Route: 054
  241. SODIUM PICOSULFATE [Concomitant]
     Active Substance: SODIUM PICOSULFATE
     Indication: Product used for unknown indication
     Dosage: 10 MILLIGRAM
     Route: 054
  242. SODIUM PICOSULFATE [Concomitant]
     Active Substance: SODIUM PICOSULFATE
     Indication: Constipation
     Dosage: 10 MILLIGRAM, QD, EVERY 1 DAYS
     Route: 065
  243. SODIUM PICOSULFATE [Concomitant]
     Active Substance: SODIUM PICOSULFATE
     Indication: Analgesic therapy
     Dosage: 10 MILLIGRAM
     Route: 065
  244. SODIUM PICOSULFATE [Concomitant]
     Active Substance: SODIUM PICOSULFATE
     Dosage: 12.5 MILLIGRAM, 1 EVERY 1 MONTHS
     Route: 065
  245. TRELEGY ELLIPTA [Concomitant]
     Active Substance: FLUTICASONE FUROATE\UMECLIDINIUM BROMIDE\VILANTEROL TRIFENATATE
     Indication: Product used for unknown indication
     Route: 065
  246. TRELEGY ELLIPTA [Concomitant]
     Active Substance: FLUTICASONE FUROATE\UMECLIDINIUM BROMIDE\VILANTEROL TRIFENATATE
     Indication: Product used for unknown indication
     Route: 065
  247. TRESIBA [Concomitant]
     Active Substance: INSULIN DEGLUDEC
     Indication: Product used for unknown indication
     Dosage: 1 DOSAGE FORM, QD, 1 EVERY 1 DAYS
     Route: 058
  248. TRESIBA [Concomitant]
     Active Substance: INSULIN DEGLUDEC
     Indication: Diabetes mellitus
     Dosage: UNK
     Route: 065
  249. TRESIBA [Concomitant]
     Active Substance: INSULIN DEGLUDEC
     Dosage: UNK
     Route: 058
  250. UMECLIDINIUM BROMIDE [Concomitant]
     Active Substance: UMECLIDINIUM BROMIDE
     Indication: Dyspnoea
     Dosage: 1 INTERNATIONAL UNIT, QD, 1 EVERY 1 DAYS
     Route: 048
  251. UMECLIDINIUM BROMIDE\VILANTEROL TRIFENATATE [Concomitant]
     Active Substance: UMECLIDINIUM BROMIDE\VILANTEROL TRIFENATATE
     Indication: Product used for unknown indication
     Dosage: 1 INTERNATIONAL UNIT, QD, 1 EVERY 1 DAYS
     Route: 048
  252. UMECLIDINIUM BROMIDE\VILANTEROL TRIFENATATE [Concomitant]
     Active Substance: UMECLIDINIUM BROMIDE\VILANTEROL TRIFENATATE
     Indication: Dyspnoea
     Dosage: 1 INTERNATIONAL UNIT
     Route: 048
  253. UMECLIDINIUM BROMIDE\VILANTEROL TRIFENATATE [Concomitant]
     Active Substance: UMECLIDINIUM BROMIDE\VILANTEROL TRIFENATATE
     Dosage: UNK
     Route: 048
  254. VASOPRESSIN [Concomitant]
     Active Substance: VASOPRESSIN
     Indication: Product used for unknown indication
     Dosage: 50 MILLILITER, QD, 1 EVERY 1 DAYS
     Route: 042
  255. VASOPRESSIN [Concomitant]
     Active Substance: VASOPRESSIN
     Indication: Drug therapy
     Dosage: UNK
     Route: 065
  256. VASOPRESSIN [Concomitant]
     Active Substance: VASOPRESSIN
     Dosage: UNK
     Route: 042
  257. VASOPRESSIN [Concomitant]
     Active Substance: VASOPRESSIN
     Dosage: 250 MILLILITER, QD, 1 EVERY 1 DAYS
     Route: 042
  258. VASOPRESSIN [Concomitant]
     Active Substance: VASOPRESSIN
     Dosage: UNK
     Route: 017
  259. VASOPRESSIN [Concomitant]
     Active Substance: VASOPRESSIN
     Dosage: 50 MILLILITER, QD, 1 EVERY 1 DAYS
     Route: 042
  260. VILANTEROL TRIFENATATE [Concomitant]
     Active Substance: VILANTEROL TRIFENATATE
     Indication: Product used for unknown indication
     Route: 065
  261. VILANTEROL TRIFENATATE [Concomitant]
     Active Substance: VILANTEROL TRIFENATATE
     Indication: Dyspnoea
  262. .ALPHA.-TOCOPHEROL [Concomitant]
     Active Substance: .ALPHA.-TOCOPHEROL
     Indication: Product used for unknown indication
     Dosage: 12.5 GRAM
     Route: 042
  263. .ALPHA.-TOCOPHEROL [Concomitant]
     Active Substance: .ALPHA.-TOCOPHEROL
     Indication: Nutritional supplementation
     Dosage: UNK GRAM
     Route: 042
  264. VITAMIN K1 [Concomitant]
     Active Substance: PHYTONADIONE
     Indication: Vitamin supplementation
     Dosage: 5 MILLIGRAM, QD, 1 EVERY 1 DAYS
     Route: 042
  265. VITAMIN K1 [Concomitant]
     Active Substance: PHYTONADIONE
     Indication: Product used for unknown indication
     Dosage: 5 MILLIGRAM,
     Route: 042
  266. VITAMIN K1 [Concomitant]
     Active Substance: PHYTONADIONE
     Indication: Off label use
  267. WARFARIN [Concomitant]
     Active Substance: WARFARIN
     Indication: Thrombosis
     Dosage: 2 MILLIGRAM, QD, 1 EVERY 1 DAYS
     Route: 048
  268. WARFARIN [Concomitant]
     Active Substance: WARFARIN
     Dosage: UNK
     Route: 048
  269. WARFARIN [Concomitant]
     Active Substance: WARFARIN
     Dosage: 2 GRAM, QD,1 EVERY 1 DAYS
     Route: 042
  270. WARFARIN [Concomitant]
     Active Substance: WARFARIN
     Dosage: 2 GRAM, QD,1 EVERY 1 DAYS
     Route: 042

REACTIONS (20)
  - Cardiogenic shock [Fatal]
  - Multiple organ dysfunction syndrome [Fatal]
  - Abdominal distension [Fatal]
  - Abdominal pain [Fatal]
  - Appendicitis [Fatal]
  - Appendicolith [Fatal]
  - Ascites [Fatal]
  - Blood phosphorus increased [Fatal]
  - Condition aggravated [Fatal]
  - Constipation [Fatal]
  - Dry mouth [Fatal]
  - General physical health deterioration [Fatal]
  - Hyponatraemia [Fatal]
  - Nausea [Fatal]
  - Sepsis [Fatal]
  - Somnolence [Fatal]
  - Stress [Fatal]
  - Ventricular fibrillation [Fatal]
  - Vomiting [Fatal]
  - Off label use [Recovered/Resolved]
